FAERS Safety Report 17841718 (Version 1)
Quarter: 2020Q2

REPORT INFORMATION
  Report Type: Spontaneous
  Country: CN (occurrence: CN)
  Receive Date: 20200529
  Receipt Date: 20200529
  Transmission Date: 20200714
  Serious: Yes (Other)
  Sender: FDA-Public Use
  Company Number: CN-BAYER-2020-093431

PATIENT
  Age: 37 Year
  Sex: Male

DRUGS (21)
  1. ARBIDOL [Concomitant]
     Active Substance: UMIFENOVIR
     Dosage: 2 DF, TID
     Dates: start: 20200126
  2. METHYLPREDNISOLONE. [Concomitant]
     Active Substance: METHYLPREDNISOLONE
     Dosage: 40 MG, QD
     Dates: start: 20200210, end: 20200211
  3. ASCORBIC ACID. [Concomitant]
     Active Substance: ASCORBIC ACID
     Dosage: 300 MG, TID
     Dates: start: 20200203
  4. THYMALFASIN [Concomitant]
     Active Substance: THYMALFASIN
     Dosage: 1.6 MG, ONCE
     Route: 058
     Dates: start: 20200213, end: 20200213
  5. HUMAN IMMUNOGLOBULIN [Concomitant]
     Dosage: 200 ML, QD
     Dates: start: 20200128, end: 20200210
  6. ACETYLCYSTEINE. [Concomitant]
     Active Substance: ACETYLCYSTEINE
     Dosage: 1 DF, BID
     Dates: start: 20200212
  7. INTERFERON GAMMA-1B RECOMBINANT [Concomitant]
     Dosage: 20 ?G, BID
     Route: 055
     Dates: start: 20200205, end: 20200207
  8. THYMALFASIN [Concomitant]
     Active Substance: THYMALFASIN
     Dosage: 1.6 MG, ONCE
     Route: 058
     Dates: start: 20200210, end: 20200210
  9. METHYLPREDNISOLONE. [Concomitant]
     Active Substance: METHYLPREDNISOLONE
     Dosage: 120 MG, BID
     Dates: start: 20200205, end: 20200206
  10. METHYLPREDNISOLONE. [Concomitant]
     Active Substance: METHYLPREDNISOLONE
     Dosage: 40 MG, BID
     Dates: start: 20200207, end: 20200209
  11. AVELOX [Suspect]
     Active Substance: MOXIFLOXACIN HYDROCHLORIDE
     Indication: COVID-19 PNEUMONIA
     Dosage: 400 MG, QD
     Dates: start: 20200127, end: 20200212
  12. OSELTAMIVIR [Concomitant]
     Active Substance: OSELTAMIVIR
     Dosage: 75 MG, BID
     Dates: start: 20200126, end: 20200205
  13. THYMALFASIN [Concomitant]
     Active Substance: THYMALFASIN
     Dosage: 1.6 MG, ONCE
     Route: 058
     Dates: start: 20200206, end: 20200206
  14. LIAN HUA QING WEN [Concomitant]
     Dosage: UNK
     Dates: start: 20200207, end: 20200213
  15. COMPOUND METHOXYPHENAMINE [Concomitant]
     Dosage: 2 DF, TID
     Dates: start: 20200205, end: 20200512
  16. RIBAVIRIN. [Concomitant]
     Active Substance: RIBAVIRIN
     Dosage: 0.5 G, BID
     Dates: start: 20200126, end: 20200207
  17. METHYLPREDNISOLONE. [Concomitant]
     Active Substance: METHYLPREDNISOLONE
     Dosage: 40 MG, BID
     Dates: start: 20200202, end: 20200204
  18. LOPINAVIR + RITONAVIR [Concomitant]
     Active Substance: LOPINAVIR\RITONAVIR
     Dosage: 2 DF, BID
     Dates: start: 20200205, end: 20200511
  19. METHYLPREDNISOLONE. [Concomitant]
     Active Substance: METHYLPREDNISOLONE
     Dosage: 40 MG, QD
     Dates: start: 20200129, end: 20200201
  20. METHYLPREDNISOLONE. [Concomitant]
     Active Substance: METHYLPREDNISOLONE
  21. METHYLPREDNISOLONE. [Concomitant]
     Active Substance: METHYLPREDNISOLONE
     Dosage: 20 MG, QD
     Dates: start: 20200212, end: 20200213

REACTIONS (7)
  - COVID-19 pneumonia [Recovering/Resolving]
  - Lymphocyte count decreased [Recovered/Resolved]
  - Off label use [None]
  - Nausea [None]
  - Hepatic failure [None]
  - Diarrhoea [None]
  - Product use in unapproved indication [None]

NARRATIVE: CASE EVENT DATE: 2020
